FAERS Safety Report 4550032-8 (Version None)
Quarter: 2005Q1

REPORT INFORMATION
  Report Type: 
  Country: None (occurrence: None)
  Receive Date: 20050112
  Receipt Date: 20050104
  Transmission Date: 20050727
  Serious: Yes (Hospitalization)
  Sender: FDA-Public Use
  Company Number: GB-BRISTOL-MYERS SQUIBB COMPANY-12812574

PATIENT
  Age: 64 Year

DRUGS (5)
  1. CISPLATIN [Suspect]
     Indication: MESOTHELIOMA
     Route: 042
     Dates: start: 20041117, end: 20041118
  2. ALIMTA [Suspect]
     Indication: MESOTHELIOMA
     Route: 042
     Dates: start: 20041117, end: 20041118
  3. FOLIC ACID [Concomitant]
     Route: 048
  4. ATENOLOL [Concomitant]
     Route: 048
  5. NOZINAN [Concomitant]
     Route: 058

REACTIONS (5)
  - NAUSEA [None]
  - NEUTROPENIC SEPSIS [None]
  - NEUTROPHIL COUNT DECREASED [None]
  - VOMITING [None]
  - WHITE BLOOD CELL COUNT DECREASED [None]
